FAERS Safety Report 23682705 (Version 1)
Quarter: 2024Q1

REPORT INFORMATION
  Report Type: Spontaneous
  Country: US (occurrence: US)
  Receive Date: 20240328
  Receipt Date: 20240328
  Transmission Date: 20240410
  Serious: No
  Sender: FDA-Public Use
  Company Number: US-ELI_LILLY_AND_COMPANY-US202403015866

PATIENT
  Age: 43 Year
  Sex: Female
  Weight: 68.4 kg

DRUGS (4)
  1. ZEPBOUND [Suspect]
     Active Substance: TIRZEPATIDE
     Indication: Product used for unknown indication
     Dosage: 5 MG, QID
     Route: 065
     Dates: end: 20240325
  2. ZEPBOUND [Suspect]
     Active Substance: TIRZEPATIDE
     Indication: Product used for unknown indication
     Dosage: 5 MG, QID
     Route: 065
     Dates: end: 20240325
  3. ZEPBOUND [Suspect]
     Active Substance: TIRZEPATIDE
     Indication: Product used for unknown indication
     Dosage: 5 MG, QID
     Route: 065
     Dates: end: 20240325
  4. ZEPBOUND [Suspect]
     Active Substance: TIRZEPATIDE
     Indication: Product used for unknown indication
     Dosage: 5 MG, QID
     Route: 065
     Dates: end: 20240325

REACTIONS (3)
  - Migraine [Unknown]
  - Vision blurred [Unknown]
  - Constipation [Unknown]

NARRATIVE: CASE EVENT DATE: 20240324
